FAERS Safety Report 6377383-9 (Version None)
Quarter: 2009Q3

REPORT INFORMATION
  Report Type: 
  Country: None (occurrence: None)
  Receive Date: 20090925
  Receipt Date: 20090916
  Transmission Date: 20100115
  Serious: Yes (Other)
  Sender: FDA-Public Use
  Company Number: US-WYE-H10629909

PATIENT
  Sex: Female
  Weight: 68.1 kg

DRUGS (2)
  1. PRISTIQ [Suspect]
     Indication: DEPRESSION
     Route: 048
     Dates: start: 20090201, end: 20090201
  2. MECLIZINE [Concomitant]

REACTIONS (2)
  - MACULAR OEDEMA [None]
  - RETINAL VEIN OCCLUSION [None]
